FAERS Safety Report 11804037 (Version 3)
Quarter: 2021Q4

REPORT INFORMATION
  Report Type: Report from Study
  Country: US (occurrence: US)
  Receive Date: 20151204
  Receipt Date: 20211228
  Transmission Date: 20220303
  Serious: Yes (Congenital Anomaly, Other)
  Sender: FDA-Public Use
  Company Number: US-JNJFOC-20151200319

PATIENT
  Age: 0 Day
  Sex: Female
  Weight: 2.06 kg

DRUGS (23)
  1. STELARA [Suspect]
     Active Substance: USTEKINUMAB
     Indication: Crohn^s disease
     Route: 064
     Dates: start: 20130215, end: 20150701
  2. ACETAMINOPHEN [Suspect]
     Active Substance: ACETAMINOPHEN
     Indication: Headache
     Route: 064
     Dates: start: 20150109, end: 20150420
  3. ACETAMINOPHEN [Suspect]
     Active Substance: ACETAMINOPHEN
     Route: 064
     Dates: start: 20150430, end: 20150903
  4. ESTRADIOL [Suspect]
     Active Substance: ESTRADIOL
     Indication: In vitro fertilisation
     Route: 064
     Dates: start: 20150116, end: 20150410
  5. PREDNISONE [Suspect]
     Active Substance: PREDNISONE
     Indication: Crohn^s disease
     Route: 064
     Dates: start: 20150109, end: 20150408
  6. PREDNISONE [Suspect]
     Active Substance: PREDNISONE
     Route: 064
     Dates: start: 20150409, end: 20150415
  7. PREDNISONE [Suspect]
     Active Substance: PREDNISONE
     Route: 064
     Dates: start: 20150416, end: 20150422
  8. PREDNISONE [Suspect]
     Active Substance: PREDNISONE
     Route: 064
     Dates: start: 20150423, end: 20150429
  9. PREDNISONE [Suspect]
     Active Substance: PREDNISONE
     Route: 064
     Dates: start: 20150430, end: 20150507
  10. PREDNISONE [Suspect]
     Active Substance: PREDNISONE
     Route: 064
     Dates: start: 20150508, end: 20150522
  11. PREDNISONE [Suspect]
     Active Substance: PREDNISONE
     Route: 064
     Dates: start: 20150523, end: 20150530
  12. PREDNISONE [Suspect]
     Active Substance: PREDNISONE
     Route: 064
     Dates: start: 20150531, end: 20150801
  13. PREDNISONE [Suspect]
     Active Substance: PREDNISONE
     Route: 064
     Dates: start: 20150802, end: 20150913
  14. TUMS [Suspect]
     Active Substance: CALCIUM CARBONATE
     Indication: Dyspepsia
     Route: 064
     Dates: start: 20150430, end: 20150903
  15. CRINONE [Suspect]
     Active Substance: PROGESTERONE
     Indication: In vitro fertilisation
     Route: 064
     Dates: start: 20150116, end: 20150417
  16. PROGESTERONE [Suspect]
     Active Substance: PROGESTERONE
     Indication: In vitro fertilisation
     Route: 064
  17. ESTRADIOL [Suspect]
     Active Substance: ESTRADIOL
     Indication: In vitro fertilisation
     Route: 064
     Dates: start: 20150116, end: 20150410
  18. BIOTIN [Concomitant]
     Active Substance: BIOTIN
     Route: 064
     Dates: start: 20150109, end: 20150913
  19. CALCIUM [Concomitant]
     Active Substance: CALCIUM
     Route: 064
     Dates: start: 20150109, end: 20150913
  20. VITAMIN D [Concomitant]
     Active Substance: VITAMIN D NOS
     Route: 064
     Dates: start: 20150109, end: 20150913
  21. FOLIC ACID [Concomitant]
     Active Substance: FOLIC ACID
     Route: 064
     Dates: start: 20150109, end: 20150913
  22. CYANOCOBALAMIN [Concomitant]
     Active Substance: CYANOCOBALAMIN
     Route: 064
     Dates: start: 20150904, end: 20150904
  23. BOOSTRIX [Concomitant]
     Active Substance: TETANUS TOXOID, REDUCED DIPHTHERIA TOXOID AND ACELLULAR PERTUSSIS VACCINE, ADSORBED ANTIGENS
     Dosage: 1 SHOT
     Route: 064
     Dates: start: 20150731, end: 20150731

REACTIONS (6)
  - Haemangioma [Unknown]
  - Premature baby [Not Recovered/Not Resolved]
  - Atrial septal defect [Unknown]
  - Ventricular septal defect [Recovering/Resolving]
  - Atrial septal defect [Recovering/Resolving]
  - Foetal exposure during pregnancy [Recovered/Resolved]

NARRATIVE: CASE EVENT DATE: 20150913
